FAERS Safety Report 14852685 (Version 1)
Quarter: 2018Q2

REPORT INFORMATION
  Report Type: Spontaneous
  Country: IT (occurrence: IT)
  Receive Date: 20180507
  Receipt Date: 20180507
  Transmission Date: 20180711
  Serious: Yes (Hospitalization)
  Sender: FDA-Public Use
  Company Number: IT-AUROBINDO-AUR-APL-2018-024218

PATIENT
  Age: 52 Year
  Sex: Male

DRUGS (4)
  1. PARACETAMOL [Suspect]
     Active Substance: ACETAMINOPHEN
     Indication: PYREXIA
     Dosage: AS NECESSARY
     Route: 048
     Dates: start: 20180409, end: 20180409
  2. TRIPLIAM [Concomitant]
     Active Substance: AMLODIPINE\INDAPAMIDE\PERINDOPRIL
     Indication: PRODUCT USED FOR UNKNOWN INDICATION
     Dosage: 5 MG/1,25 MG/5 MG COMPRESSE RIVESTITE CON FILM
     Route: 065
  3. SYNFLEX                            /00167701/ [Suspect]
     Active Substance: MEPHENOXALONE
     Indication: PAIN
     Dosage: AS NECESSARY COMPRESSE RIVESTITE
     Route: 048
     Dates: start: 20180409, end: 20180409
  4. CARDICOR [Concomitant]
     Active Substance: BISOPROLOL
     Indication: PRODUCT USED FOR UNKNOWN INDICATION
     Dosage: COMPRESSE RIVESTITE CON FILM
     Route: 065

REACTIONS (2)
  - Face oedema [Unknown]
  - Lip oedema [Unknown]

NARRATIVE: CASE EVENT DATE: 20180409
